FAERS Safety Report 8600609 (Version 2)
Quarter: 2012Q4

REPORT INFORMATION
  Report Type: 
  Country: JP (occurrence: JP)
  Receive Date: 20120606
  Receipt Date: 20121106
  Transmission Date: 20130627
  Serious: Yes (Other)
  Sender: FDA-Public Use
  Company Number: PHHY2012JP045083

PATIENT
  Age: 23 Year
  Sex: Female

DRUGS (5)
  1. INTERFERON BETA-1B [Suspect]
     Indication: MULTIPLE SCLEROSIS RELAPSE
     Dosage: 4 MIU, QOD
     Route: 058
  2. INTERFERON BETA-1B [Interacting]
     Dosage: 8 MIU, QOD
     Route: 058
  3. INTERFERON BETA-1B [Interacting]
     Dosage: 6 MIU, QOD
     Route: 058
  4. MELILOTUS OFFICINALIS POLLEN [Interacting]
     Dosage: 10 mg/day
  5. LUTEIN [Concomitant]

REACTIONS (7)
  - Drug interaction [Recovered/Resolved]
  - Alanine aminotransferase increased [Recovered/Resolved]
  - Aspartate aminotransferase increased [Recovered/Resolved]
  - Hepatic function abnormal [None]
  - Multiple sclerosis relapse [None]
  - Jaundice [None]
  - Hepatotoxicity [None]
